FAERS Safety Report 6873383-0 (Version None)
Quarter: 2010Q3

REPORT INFORMATION
  Report Type: 
  Country: None (occurrence: None)
  Receive Date: 20100723
  Receipt Date: 20090521
  Transmission Date: 20110219
  Serious: No
  Sender: FDA-Public Use
  Company Number: US-PFIZER INC-2008156262

PATIENT
  Sex: Male
  Weight: 115.66 kg

DRUGS (5)
  1. CHANTIX [Suspect]
     Indication: SMOKING CESSATION THERAPY
     Dosage: UNK
     Dates: start: 20080101
  2. ALL OTHER THERAPEUTIC PRODUCTS [Concomitant]
     Indication: THYROID DISORDER
     Dosage: UNK
  3. CARDIOVASCULAR SYSTEM DRUGS [Concomitant]
     Dosage: UNK
  4. ANALGESICS [Concomitant]
     Dosage: UNK
  5. VALIUM [Concomitant]
     Indication: STRESS
     Dosage: UNK

REACTIONS (4)
  - ABNORMAL DREAMS [None]
  - INCORRECT DOSE ADMINISTERED [None]
  - MYOCARDIAL INFARCTION [None]
  - PALPITATIONS [None]
